FAERS Safety Report 4421819-7 (Version None)
Quarter: 2004Q3

REPORT INFORMATION
  Report Type: 
  Country: None (occurrence: None)
  Receive Date: 20040806
  Receipt Date: 20040723
  Transmission Date: 20050211
  Serious: Yes (Other)
  Sender: FDA-Public Use
  Company Number: 2004225216NO

PATIENT
  Age: 33 Year
  Sex: Female

DRUGS (3)
  1. BEXTRA [Suspect]
     Indication: MYALGIA
     Dosage: PRN, ORAL
     Route: 048
     Dates: end: 20040401
  2. CELEBREX [Concomitant]
     Indication: MYALGIA
     Dosage: PRN, ORAL
     Route: 048
     Dates: end: 20040401
  3. FLUOXETINE [Suspect]
     Indication: DEPRESSION
     Dosage: 20 MG,BID, ORAL
     Route: 048
     Dates: start: 20030301, end: 20040507

REACTIONS (2)
  - DRUG EXPOSURE DURING PREGNANCY [None]
  - INTRA-UTERINE DEATH [None]
